FAERS Safety Report 4938318-6 (Version None)
Quarter: 2006Q1

REPORT INFORMATION
  Report Type: 
  Country: None (occurrence: None)
  Receive Date: 20060309
  Receipt Date: 20060304
  Transmission Date: 20060701
  Serious: Yes (Other)
  Sender: FDA-Public Use
  Company Number: GB-GLAXOSMITHKLINE-B0414390A

PATIENT
  Age: 71 Year
  Sex: Female

DRUGS (6)
  1. AMOXICILLIN [Suspect]
     Dosage: 500MG PER DAY
     Route: 048
     Dates: start: 20060216, end: 20060216
  2. SALBUTAMOL [Concomitant]
     Dosage: 5MG PER DAY
     Dates: start: 19930101
  3. ATROVENT [Concomitant]
     Dosage: .5MG PER DAY
     Dates: start: 19930101
  4. PREDNISOLONE [Concomitant]
     Dosage: 40MG PER DAY
     Route: 048
     Dates: start: 20060215
  5. RAMIPRIL [Concomitant]
     Dosage: 2.5MG PER DAY
     Route: 048
     Dates: start: 20030101
  6. BENDROFLUAZIDE [Concomitant]
     Dosage: 2.5MG PER DAY
     Route: 048
     Dates: start: 20030101

REACTIONS (4)
  - ANAPHYLACTIC REACTION [None]
  - DYSPNOEA [None]
  - PRURITUS [None]
  - RASH [None]
